FAERS Safety Report 25282173 (Version 1)
Quarter: 2025Q2

REPORT INFORMATION
  Report Type: Other
  Country: NL (occurrence: NL)
  Receive Date: 20250508
  Receipt Date: 20250508
  Transmission Date: 20250717
  Serious: Yes (Other)
  Sender: B BRAUN
  Company Number: NL-B.Braun Medical Inc.-2176354

PATIENT
  Age: 3 Year
  Sex: Female

DRUGS (7)
  1. ACETAMINOPHEN [Suspect]
     Active Substance: ACETAMINOPHEN
     Indication: Allergy prophylaxis
  2. TACROLIMUS [Suspect]
     Active Substance: TACROLIMUS
  3. PREDNISONE [Concomitant]
     Active Substance: PREDNISONE
  4. MYCOPHENOLATE MOFETIL [Suspect]
     Active Substance: MYCOPHENOLATE MOFETIL
  5. RITUXIMAB [Suspect]
     Active Substance: RITUXIMAB
  6. CLEMASTINE [Suspect]
     Active Substance: CLEMASTINE
  7. METHYLPREDNISOLONE [Suspect]
     Active Substance: METHYLPREDNISOLONE

REACTIONS (10)
  - Respiratory tract infection [Unknown]
  - Drug hypersensitivity [Recovered/Resolved]
  - Erythema [Recovered/Resolved]
  - Nausea [Recovered/Resolved]
  - Dyspnoea [Recovered/Resolved]
  - Tachypnoea [Unknown]
  - Stridor [Recovered/Resolved]
  - Asthma [Unknown]
  - Eczema [Unknown]
  - Drug ineffective [Unknown]
